FAERS Safety Report 10263123 (Version 2)
Quarter: 2014Q2

REPORT INFORMATION
  Report Type: Report from Study
  Country: US (occurrence: US)
  Receive Date: 20140626
  Receipt Date: 20140626
  Transmission Date: 20141212
  Serious: Yes (Death)
  Sender: FDA-Public Use
  Company Number: US-MYLANLABS-2014S1002178

PATIENT
  Sex: Female

DRUGS (9)
  1. CLOZAPINE [Suspect]
     Indication: DELUSION
     Route: 048
  2. ATIVAN [Concomitant]
  3. VITAMIN D [Concomitant]
  4. ESCITALOPRAM [Concomitant]
  5. DOCUSATE [Concomitant]
  6. LEVOTHYROXINE [Concomitant]
  7. TYLENOL [Concomitant]
  8. FLUMADINE [Concomitant]
  9. OXYBUTIN [Concomitant]

REACTIONS (1)
  - Death [Fatal]
